FAERS Safety Report 20000493 (Version 2)
Quarter: 2021Q4

REPORT INFORMATION
  Report Type: Spontaneous
  Country: IT (occurrence: IT)
  Receive Date: 20211027
  Receipt Date: 20211108
  Transmission Date: 20220304
  Serious: Yes (Death, Other)
  Sender: FDA-Public Use
  Company Number: IT-ROCHE-2929783

PATIENT
  Age: 23 Year
  Sex: Female

DRUGS (12)
  1. VALGANCICLOVIR [Suspect]
     Active Substance: VALGANCICLOVIR
     Indication: Cytomegalovirus infection
     Dosage: 1800 MILLIGRAM, ONCE A DAY(900 MILLIGRAM, BID)
     Route: 065
     Dates: start: 2018
  2. GANCICLOVIR [Suspect]
     Active Substance: GANCICLOVIR
     Indication: Cytomegalovirus infection
     Dosage: 460 MILLIGRAM, ONCE A DAY(230 MILLIGRAM, BID)
     Route: 065
     Dates: start: 2019
  3. GANCICLOVIR [Suspect]
     Active Substance: GANCICLOVIR
     Dosage: 500 MILLIGRAM, ONCE A DAY(250 MILLIGRAM, BID)
     Route: 042
     Dates: start: 2019
  4. GANCICLOVIR [Suspect]
     Active Substance: GANCICLOVIR
     Dosage: 400 MILLIGRAM, ONCE A DAY(200 MILLIGRAM, BID)
     Route: 042
     Dates: start: 2019
  5. CIDOFOVIR [Concomitant]
     Active Substance: CIDOFOVIR
     Indication: Product used for unknown indication
     Dosage: 5 MILLIGRAM/KILOGRAM, EVERY WEEK
     Route: 065
  6. DAPTOMYCIN [Concomitant]
     Active Substance: DAPTOMYCIN
     Indication: Staphylococcal sepsis
     Dosage: UNK
     Route: 065
  7. FOSCARNET [Concomitant]
     Active Substance: FOSCARNET
     Indication: Product used for unknown indication
     Dosage: 90 MILLIGRAM/KILOGRAM, 3 TIMES A DAY
     Route: 065
  8. Immunoglobulin [Concomitant]
     Indication: Immunoglobulin therapy
     Dosage: 400 MILLIGRAM/KILOGRAM, EVERY WEEK
  9. Immunoglobulin [Concomitant]
     Dosage: 200 MILLIGRAM/KILOGRAM, EVERY WEEK
  10. LINEZOLID [Concomitant]
     Active Substance: LINEZOLID
     Indication: Staphylococcal sepsis
     Dosage: UNK
     Route: 065
  11. LETERMOVIR [Concomitant]
     Active Substance: LETERMOVIR
     Indication: Product used for unknown indication
     Dosage: 480 MILLIGRAM, DAILY
     Route: 048
  12. TACROLIMUS [Concomitant]
     Active Substance: TACROLIMUS
     Indication: Immunosuppressant drug therapy
     Dosage: 0.5 MILLIGRAM, ONCE A DAY
     Route: 065
     Dates: start: 2018

REACTIONS (3)
  - Drug ineffective [Fatal]
  - Drug resistance [Unknown]
  - Off label use [Unknown]

NARRATIVE: CASE EVENT DATE: 20190101
